FAERS Safety Report 8283422-0 (Version None)
Quarter: 2012Q2

REPORT INFORMATION
  Report Type: 
  Country: None (occurrence: None)
  Receive Date: 20120413
  Receipt Date: 20120406
  Transmission Date: 20120825
  Serious: Yes (Hospitalization)
  Sender: FDA-Public Use
  Company Number: US-ELI_LILLY_AND_COMPANY-US201202003060

PATIENT
  Sex: Female

DRUGS (4)
  1. HUMALOG [Suspect]
     Indication: TYPE 2 DIABETES MELLITUS
     Dosage: UNK, PRN
  2. HUMALOG [Suspect]
     Indication: DIABETES MELLITUS
     Dosage: UNK, PRN
  3. ORAL ANTIDIABETICS [Concomitant]
  4. PREDNISONE TAB [Concomitant]

REACTIONS (9)
  - BRONCHITIS [None]
  - PNEUMONIA [None]
  - FEELING ABNORMAL [None]
  - VIITH NERVE PARALYSIS [None]
  - DRUG INEFFECTIVE [None]
  - VISUAL ACUITY REDUCED [None]
  - VIRAL INFECTION [None]
  - BLOOD GLUCOSE INCREASED [None]
  - EYELID DISORDER [None]
